FAERS Safety Report 7355985-0 (Version None)
Quarter: 2011Q1

REPORT INFORMATION
  Report Type: 
  Country: None (occurrence: None)
  Receive Date: 20110316
  Receipt Date: 20110222
  Transmission Date: 20110831
  Serious: Yes (Other)
  Sender: FDA-Public Use
  Company Number: CA-SANOFI-AVENTIS-2011SA011102

PATIENT
  Sex: Male

DRUGS (1)
  1. LANTUS [Suspect]
     Route: 058
     Dates: start: 20110117

REACTIONS (5)
  - DECREASED APPETITE [None]
  - WEIGHT DECREASED [None]
  - HEADACHE [None]
  - VOMITING [None]
  - NAUSEA [None]
